FAERS Safety Report 8903323 (Version 1)
Quarter: 2012Q4

REPORT INFORMATION
  Report Type: 
  Country: AU (occurrence: AU)
  Receive Date: 20121112
  Receipt Date: 20121112
  Transmission Date: 20130627
  Serious: Yes (Hospitalization)
  Sender: FDA-Public Use
  Company Number: AU-B.I. PHARMACEUTICALS,INC./RIDGEFIELD-2012-AU-01842AU

PATIENT
  Sex: Female
  Weight: 54.2 kg

DRUGS (5)
  1. PRADAXA [Suspect]
     Indication: ATRIAL FIBRILLATION
     Dosage: 220 mg
     Dates: start: 20110623, end: 20120105
  2. INDAPAMIDE [Suspect]
     Dosage: 1.25 mg
     Dates: start: 201103, end: 201112
  3. MOXONIDINE [Concomitant]
     Dosage: 200 mg
     Dates: start: 201109
  4. PERINDOPRIL [Concomitant]
     Dosage: 5 mg
     Dates: start: 201103
  5. NEBIVOLOL [Concomitant]
     Dosage: 5 mg
     Dates: start: 201103

REACTIONS (4)
  - Vomiting [Recovered/Resolved]
  - Nausea [Recovered/Resolved]
  - Pruritus [Recovered/Resolved]
  - Rash [Recovered/Resolved]
